FAERS Safety Report 5192993-2 (Version None)
Quarter: 2006Q4

REPORT INFORMATION
  Report Type: 
  Country: None (occurrence: None)
  Receive Date: 20061228
  Receipt Date: 20060126
  Transmission Date: 20070319
  Serious: No
  Sender: FDA-Public Use
  Company Number: US-GLAXOSMITHKLINE-A0591081A

PATIENT
  Age: 67 Year
  Sex: Male

DRUGS (7)
  1. AVODART [Suspect]
     Indication: BENIGN PROSTATIC HYPERPLASIA
     Dosage: .5MG PER DAY
     Route: 048
     Dates: start: 20060101
  2. FLOMAX [Concomitant]
  3. COUMADIN [Concomitant]
  4. LUNESTA [Concomitant]
  5. LIPITOR [Concomitant]
  6. VITAMIN E [Concomitant]
  7. CALCIUM [Concomitant]

REACTIONS (8)
  - ARTHRITIS [None]
  - FATIGUE [None]
  - INSOMNIA [None]
  - MUSCLE FATIGUE [None]
  - MUSCULAR WEAKNESS [None]
  - NOCTURIA [None]
  - PARAESTHESIA [None]
  - SEMEN VISCOSITY DECREASED [None]
